FAERS Safety Report 5496324-X (Version None)
Quarter: 2007Q4

REPORT INFORMATION
  Report Type: 
  Country: None (occurrence: None)
  Receive Date: 20071025
  Receipt Date: 20070326
  Transmission Date: 20080405
  Serious: No
  Sender: FDA-Public Use
  Company Number: A0644661A

PATIENT
  Age: 78 Year
  Sex: Female

DRUGS (15)
  1. ADVAIR DISKUS 100/50 [Suspect]
     Indication: LUNG DISORDER
     Route: 055
     Dates: start: 20070312
  2. PREVACID [Concomitant]
  3. COMBIVENT [Concomitant]
  4. AEROCHAMBER [Concomitant]
  5. PAMELOR [Concomitant]
  6. ZANTAC [Concomitant]
  7. REFRESH [Concomitant]
  8. XALATAN [Concomitant]
  9. ESTRACE [Concomitant]
  10. VITAMINS [Concomitant]
  11. TUMS [Concomitant]
  12. BOOST [Concomitant]
  13. ENSURE [Concomitant]
  14. BENEFIBER [Concomitant]
  15. MILK OF MAGNESIA [Concomitant]

REACTIONS (1)
  - DRUG INEFFECTIVE [None]
